FAERS Safety Report 5404894-2 (Version None)
Quarter: 2007Q3

REPORT INFORMATION
  Report Type: 
  Country: None (occurrence: None)
  Receive Date: 20070803
  Receipt Date: 20070724
  Transmission Date: 20080115
  Serious: Yes (Death, Hospitalization)
  Sender: FDA-Public Use
  Company Number: FR-JNJFOC-20070705634

PATIENT
  Age: 75 Year
  Sex: Female

DRUGS (1)
  1. REMICADE [Suspect]
     Indication: AMYLOIDOSIS
     Dosage: 2 DOSES IN SEPTEMBER/OCTOBER 2007
     Route: 042

REACTIONS (1)
  - CARDIAC FAILURE [None]
